FAERS Safety Report 7028043-2 (Version None)
Quarter: 2010Q3

REPORT INFORMATION
  Report Type: 
  Country: None (occurrence: None)
  Receive Date: 20100930
  Receipt Date: 20100923
  Transmission Date: 20110219
  Serious: Yes (Other)
  Sender: FDA-Public Use
  Company Number: 2010SP038189

PATIENT
  Age: 49 Year
  Sex: Female
  Weight: 61 kg

DRUGS (1)
  1. IMPLANON [Suspect]
     Indication: CONTRACEPTION
     Dosage: 1 DF ; 1 DF
     Dates: start: 20090401, end: 20100818

REACTIONS (3)
  - AMENORRHOEA [None]
  - DEVICE DISLOCATION [None]
  - ULNAR NERVE INJURY [None]
